APPROVED DRUG PRODUCT: TIMOLOL MALEATE
Active Ingredient: TIMOLOL MALEATE
Strength: EQ 0.25% BASE
Dosage Form/Route: SOLUTION/DROPS;OPHTHALMIC
Application: A077259 | Product #001 | TE Code: AT1
Applicant: FDC LTD
Approved: Apr 30, 2008 | RLD: No | RS: No | Type: RX